APPROVED DRUG PRODUCT: CEFTRIAXONE AND DEXTROSE IN DUPLEX CONTAINER
Active Ingredient: CEFTRIAXONE SODIUM
Strength: EQ 2GM BASE/VIAL
Dosage Form/Route: INJECTABLE;INJECTION
Application: N050796 | Product #002 | TE Code: AP
Applicant: B BRAUN MEDICAL INC
Approved: Apr 20, 2005 | RLD: Yes | RS: Yes | Type: RX